FAERS Safety Report 13232194 (Version 1)
Quarter: 2017Q1

REPORT INFORMATION
  Report Type: Report from Study
  Country: CZ (occurrence: CZ)
  Receive Date: 20170214
  Receipt Date: 20170214
  Transmission Date: 20170428
  Serious: Yes (Death, Other)
  Sender: FDA-Public Use
  Company Number: CZ-CELGENEUS-CZE-2017021688

PATIENT

DRUGS (2)
  1. DEXAMETHASONE. [Concomitant]
     Active Substance: DEXAMETHASONE
     Indication: PLASMA CELL MYELOMA
     Route: 065
  2. POMALIDOMIDE [Suspect]
     Active Substance: POMALIDOMIDE
     Indication: PLASMA CELL MYELOMA
     Route: 048

REACTIONS (46)
  - Depression [Unknown]
  - Renal failure [Unknown]
  - Thrombosis [Unknown]
  - Toxicity to various agents [Unknown]
  - Pruritus [Unknown]
  - Oedema peripheral [Unknown]
  - Death [Fatal]
  - Hip fracture [Unknown]
  - Thrombocytopenia [Unknown]
  - Dyspnoea [Unknown]
  - Tremor [Unknown]
  - Myocardial ischaemia [Unknown]
  - Neutropenia [Unknown]
  - Febrile neutropenia [Unknown]
  - Dehydration [Unknown]
  - Hypotension [Unknown]
  - Nausea [Unknown]
  - Constipation [Unknown]
  - Decreased appetite [Unknown]
  - Dizziness [Unknown]
  - Insomnia [Unknown]
  - Ear infection [Unknown]
  - Strabismus [Unknown]
  - General physical health deterioration [Unknown]
  - Neuropathy peripheral [Unknown]
  - Fatigue [Unknown]
  - Tumour lysis syndrome [Unknown]
  - Back pain [Unknown]
  - Angina pectoris [Unknown]
  - Cushingoid [Unknown]
  - Anaemia [Unknown]
  - Fluid retention [Unknown]
  - Hyperviscosity syndrome [Unknown]
  - Therapy non-responder [Unknown]
  - Embolism [Unknown]
  - Diarrhoea [Unknown]
  - Muscle spasms [Unknown]
  - Cough [Unknown]
  - Oedema [Unknown]
  - Plasma cell myeloma [Unknown]
  - Hyperhidrosis [Unknown]
  - Infection [Unknown]
  - Vasculitis [Unknown]
  - Colitis [Unknown]
  - Peripheral motor neuropathy [Unknown]
  - Vomiting [Unknown]
